FAERS Safety Report 4983510-8 (Version None)
Quarter: 2006Q2

REPORT INFORMATION
  Report Type: 
  Country: None (occurrence: None)
  Receive Date: 20060426
  Receipt Date: 20060117
  Transmission Date: 20061013
  Serious: Yes (Hospitalization)
  Sender: FDA-Public Use
  Company Number: US-MERCK-0601USA02256

PATIENT
  Age: 80 Year
  Sex: Male
  Weight: 66 kg

DRUGS (12)
  1. VIOXX [Suspect]
     Indication: OSTEOARTHRITIS
     Route: 048
     Dates: start: 19991101, end: 20040930
  2. VIOXX [Suspect]
     Route: 048
     Dates: start: 19991101, end: 20040930
  3. VIOXX [Suspect]
     Route: 048
     Dates: start: 19991101, end: 20040930
  4. VIOXX [Suspect]
     Route: 048
     Dates: start: 19991101, end: 20040930
  5. ALBUTEROL [Concomitant]
     Indication: ASTHMA
     Route: 065
  6. PREDNISOLONE [Concomitant]
     Indication: PAIN
     Route: 065
     Dates: start: 19900101, end: 20050101
  7. CLORAZEPATE MONOPOTASSIUM [Concomitant]
     Indication: ANXIETY
     Route: 065
     Dates: start: 19900101, end: 20050101
  8. RABEPRAZOLE SODIUM [Concomitant]
     Indication: DYSPEPSIA
     Route: 065
  9. ACETAMINOPHEN [Concomitant]
     Indication: PAIN
     Route: 065
     Dates: start: 20000101, end: 20010101
  10. CYCLOBENZAPRINE HYDROCHLORIDE [Concomitant]
     Indication: PAIN
     Route: 065
     Dates: start: 19900101, end: 20050101
  11. LANSOPRAZOLE [Concomitant]
     Indication: GASTRIC ULCER
     Route: 065
     Dates: start: 19900101, end: 20050101
  12. NEFAZODONE HYDROCHLORIDE [Concomitant]
     Indication: DEPRESSION
     Route: 065

REACTIONS (12)
  - BACK DISORDER [None]
  - CARDIOVASCULAR DISORDER [None]
  - DYSPNOEA [None]
  - EYE DISORDER [None]
  - EYE HAEMORRHAGE [None]
  - LUNG NEOPLASM MALIGNANT [None]
  - MITRAL VALVE INCOMPETENCE [None]
  - MYOCARDIAL INFARCTION [None]
  - OVERDOSE [None]
  - RETINAL HAEMORRHAGE [None]
  - ROTATOR CUFF SYNDROME [None]
  - VERTIGO [None]
